FAERS Safety Report 13155971 (Version 1)
Quarter: 2017Q1

REPORT INFORMATION
  Report Type: Spontaneous
  Country: US (occurrence: US)
  Receive Date: 20170126
  Receipt Date: 20170126
  Transmission Date: 20170428
  Serious: No
  Sender: FDA-Public Use
  Company Number: US-ROCHE-688035

PATIENT
  Sex: Female

DRUGS (1)
  1. VALIUM [Suspect]
     Active Substance: DIAZEPAM
     Indication: DENTAL OPERATION
     Dosage: THE PATIENT RECEIVED ^2^ VALIUM ON 27 JAN 2010 AND ^2^ VALIUM ON 28 JAN 2010
     Route: 065
     Dates: start: 20100127, end: 20100128

REACTIONS (1)
  - Drug screen positive [Unknown]

NARRATIVE: CASE EVENT DATE: 20100212
